FAERS Safety Report 7101787-X (Version None)
Quarter: 2010Q4

REPORT INFORMATION
  Report Type: 
  Country: None (occurrence: None)
  Receive Date: 20101115
  Receipt Date: 20101105
  Transmission Date: 20110411
  Serious: Yes (Death, Other)
  Sender: FDA-Public Use
  Company Number: JP-BAYER-201011687BYL

PATIENT
  Age: 35 Year
  Sex: Female
  Weight: 46 kg

DRUGS (1)
  1. NEXAVAR [Suspect]
     Indication: RENAL CELL CARCINOMA
     Dosage: TOTAL DAILY DOSE: 400 MG  UNIT DOSE: 200 MG
     Route: 048
     Dates: start: 20100301, end: 20100405

REACTIONS (3)
  - HEPATIC FUNCTION ABNORMAL [None]
  - RASH [None]
  - RENAL CELL CARCINOMA [None]
